FAERS Safety Report 4824205-0 (Version None)
Quarter: 2005Q4

REPORT INFORMATION
  Report Type: 
  Country: None (occurrence: None)
  Receive Date: 20051108
  Receipt Date: 20051028
  Transmission Date: 20060501
  Serious: Yes (Death, Other)
  Sender: FDA-Public Use
  Company Number: 2005149638

PATIENT
  Age: 44 Year
  Sex: Male

DRUGS (7)
  1. NELFINAVIR MESILATE (NELFINAVIR MESILATE) [Suspect]
     Indication: HIV INFECTION
  2. LAMIVUDINE/ZIDOVUDINE (LAMIVUDINE, ZIDOVUDINE) [Suspect]
     Indication: HIV INFECTION
  3. WARFARIN SODIUM [Concomitant]
  4. OXAZEPAM [Concomitant]
  5. CHLORPROTHIXENE (CHLORPROTHIXENE) [Concomitant]
  6. SPIRONOLACTONE [Concomitant]
  7. METHADONE HCL [Concomitant]

REACTIONS (4)
  - BRADYCARDIA [None]
  - ELECTROCARDIOGRAM QT PROLONGED [None]
  - TORSADE DE POINTES [None]
  - VENTRICULAR EXTRASYSTOLES [None]
